FAERS Safety Report 23003828 (Version 3)
Quarter: 2023Q4

REPORT INFORMATION
  Report Type: Report from Study
  Country: US (occurrence: US)
  Receive Date: 20230928
  Receipt Date: 20231130
  Transmission Date: 20240110
  Serious: Yes (Hospitalization)
  Sender: FDA-Public Use
  Company Number: US-ARGENX-2023-ARGX-US002677

PATIENT

DRUGS (2)
  1. VYVGART [Suspect]
     Active Substance: EFGARTIGIMOD ALFA-FCAB
     Indication: Myasthenia gravis
     Dosage: UNK
     Route: 042
     Dates: start: 20230629
  2. VYVGART [Suspect]
     Active Substance: EFGARTIGIMOD ALFA-FCAB
     Dosage: 10 MG/KG
     Route: 042

REACTIONS (7)
  - Myasthenia gravis crisis [Unknown]
  - Pneumonia [Unknown]
  - Urinary tract infection [Unknown]
  - Pneumonia [Unknown]
  - Balance disorder [Unknown]
  - Visual impairment [Unknown]
  - Bronchitis [Unknown]

NARRATIVE: CASE EVENT DATE: 20231030
